FAERS Safety Report 8545324-1 (Version None)
Quarter: 2012Q3

REPORT INFORMATION
  Report Type: 
  Country: None (occurrence: None)
  Receive Date: 20120727
  Receipt Date: 20120723
  Transmission Date: 20120928
  Serious: Yes (Other)
  Sender: FDA-Public Use
  Company Number: US-ABBOTT-12P-163-0959257-00

PATIENT
  Sex: Male
  Weight: 79.45 kg

DRUGS (3)
  1. SIMVASTATIN [Concomitant]
     Indication: PRODUCT USED FOR UNKNOWN INDICATION
  2. LOTREL [Concomitant]
     Indication: PRODUCT USED FOR UNKNOWN INDICATION
  3. NIASPAN [Suspect]
     Indication: BLOOD TRIGLYCERIDES ABNORMAL
     Dosage: DOES NOT KNOWN TAKING IT EVERY NIGHT
     Dates: start: 20100101, end: 20100103

REACTIONS (4)
  - ERYTHEMA [None]
  - CORONARY ARTERY OCCLUSION [None]
  - BURNING SENSATION [None]
  - FEELING HOT [None]
